FAERS Safety Report 7928546-X (Version None)
Quarter: 2011Q4

REPORT INFORMATION
  Report Type: 
  Country: None (occurrence: None)
  Receive Date: 20111118
  Receipt Date: 20111116
  Transmission Date: 20120403
  Serious: Yes (Hospitalization)
  Sender: FDA-Public Use
  Company Number: US-B.I. PHARMACEUTICALS,INC./RIDGEFIELD-2011-BP-24200BP

PATIENT
  Age: 75 Year
  Sex: Female

DRUGS (13)
  1. METFORMIN HCL [Concomitant]
     Indication: DIABETES MELLITUS
     Route: 048
  2. IMDUR [Concomitant]
  3. VITAMIN B COMPLEX CAP [Concomitant]
  4. VYTORIN [Concomitant]
  5. PRADAXA [Suspect]
     Indication: ATRIAL FLUTTER
  6. AMITRYTONE [Concomitant]
  7. PROPAFENONE HCL [Concomitant]
  8. LISINOPRIL [Concomitant]
     Indication: HYPERTENSION
     Route: 048
  9. PRADAXA [Suspect]
     Indication: ATRIAL FIBRILLATION
     Dosage: 300 MG
     Route: 048
     Dates: start: 20110601, end: 20110901
  10. ISOSORBIDE DINITRATE [Concomitant]
     Indication: CARDIAC DISORDER
     Route: 048
  11. IRON [Concomitant]
  12. RUTARIN [Concomitant]
     Indication: BLOOD CHOLESTEROL INCREASED
     Route: 048
  13. BISOPROLOL FUMARATE [Concomitant]

REACTIONS (2)
  - CEREBROVASCULAR ACCIDENT [None]
  - GASTROINTESTINAL HAEMORRHAGE [None]
